FAERS Safety Report 6779391-2 (Version None)
Quarter: 2010Q2

REPORT INFORMATION
  Report Type: 
  Country: None (occurrence: None)
  Receive Date: 20100618
  Receipt Date: 20100610
  Transmission Date: 20101027
  Serious: Yes (Other)
  Sender: FDA-Public Use
  Company Number: PHHO2010TW08924

PATIENT
  Sex: Male
  Weight: 55 kg

DRUGS (3)
  1. ZOLEDRONATE T29581+SOLINJ+BM [Suspect]
     Indication: PROSTATE CANCER
     Dosage: 3.3 MG, UNK
     Route: 042
     Dates: start: 20080327, end: 20090903
  2. VITAMIN D [Concomitant]
     Dosage: UNK
  3. CALCIUM CARBONATE [Concomitant]

REACTIONS (1)
  - OSTEONECROSIS OF JAW [None]
